FAERS Safety Report 8060765-7 (Version None)
Quarter: 2012Q1

REPORT INFORMATION
  Report Type: 
  Country: None (occurrence: None)
  Receive Date: 20120120
  Receipt Date: 20110112
  Transmission Date: 20120608
  Serious: No
  Sender: FDA-Public Use
  Company Number: US-ALLERGAN-1100382US

PATIENT
  Age: 71 Year
  Sex: Female

DRUGS (1)
  1. RESTASIS [Suspect]
     Indication: DRY EYE
     Dosage: 1 GTT, BID
     Route: 047
     Dates: start: 20101224, end: 20110105

REACTIONS (5)
  - DISCOMFORT [None]
  - DRY EYE [None]
  - EYE PRURITUS [None]
  - OCULAR HYPERAEMIA [None]
  - EYE IRRITATION [None]
